FAERS Safety Report 4431495-5 (Version None)
Quarter: 2004Q3

REPORT INFORMATION
  Report Type: 
  Country: None (occurrence: None)
  Receive Date: 20040824
  Receipt Date: 20040817
  Transmission Date: 20050211
  Serious: Yes (Congenital Anomaly, Other)
  Sender: FDA-Public Use
  Company Number: PHRM2004FR02614

PATIENT
  Age: 31 Year
  Sex: Female

DRUGS (3)
  1. NEORAL [Suspect]
     Indication: RENAL TRANSPLANT
     Route: 048
  2. IMUREL [Suspect]
     Indication: RENAL TRANSPLANT
  3. CORTANCYL [Suspect]

REACTIONS (2)
  - CONGENITAL ECTODERMAL DYSPLASIA [None]
  - DRUG EXPOSURE DURING PREGNANCY [None]
